FAERS Safety Report 9379178 (Version 2)
Quarter: 2013Q3

REPORT INFORMATION
  Report Type: Spontaneous
  Country: AU (occurrence: AU)
  Receive Date: 20130702
  Receipt Date: 20130909
  Transmission Date: 20140515
  Serious: Yes (Other)
  Sender: FDA-Public Use
  Company Number: AU-ASTELLAS-2013US006877

PATIENT
  Age: 66 Year
  Sex: Female

DRUGS (1)
  1. TARCEVA [Suspect]
     Indication: LUNG ADENOCARCINOMA STAGE IV
     Dosage: UNK
     Route: 065
     Dates: end: 201305

REACTIONS (3)
  - Ill-defined disorder [Unknown]
  - Pyrexia [Unknown]
  - Metastases to central nervous system [Unknown]
